FAERS Safety Report 13469752 (Version 1)
Quarter: 2017Q2

REPORT INFORMATION
  Report Type: Spontaneous
  Country: DK (occurrence: DK)
  Receive Date: 20170422
  Receipt Date: 20170422
  Transmission Date: 20170830
  Serious: Yes (Other)
  Sender: FDA-Public Use
  Company Number: DK-ACCORD-050479

PATIENT
  Age: 54 Year
  Sex: Female
  Weight: 72 kg

DRUGS (2)
  1. OXALIPLATIN ACCORD [Suspect]
     Active Substance: OXALIPLATIN
     Indication: COLON CANCER STAGE III
     Dosage: STRENGTH: 5 MG/ML
     Route: 042
     Dates: start: 20170331
  2. CAPECITABINE ACCORD [Concomitant]
     Active Substance: CAPECITABINE
     Indication: COLON CANCER STAGE III
     Dates: start: 20170401

REACTIONS (3)
  - Speech disorder [Recovered/Resolved]
  - Tongue oedema [Recovered/Resolved]
  - Product quality issue [Unknown]

NARRATIVE: CASE EVENT DATE: 20170401
